FAERS Safety Report 14485662 (Version 1)
Quarter: 2018Q1

REPORT INFORMATION
  Report Type: Spontaneous
  Country: US (occurrence: US)
  Receive Date: 20180205
  Receipt Date: 20180205
  Transmission Date: 20180509
  Serious: No
  Sender: FDA-Public Use
  Company Number: US-009507513-1801USA006862

PATIENT
  Age: 20 Year
  Sex: Female
  Weight: 104.31 kg

DRUGS (2)
  1. NEXPLANON [Suspect]
     Active Substance: ETONOGESTREL
     Indication: CONTRACEPTION
     Dosage: 1 DF, FREQUENCY UNKNOWN
     Route: 059
     Dates: start: 201602
  2. ZOLOFT [Concomitant]
     Active Substance: SERTRALINE HYDROCHLORIDE

REACTIONS (3)
  - Pain [Unknown]
  - Implant site pain [Unknown]
  - Menorrhagia [Unknown]

NARRATIVE: CASE EVENT DATE: 201605
